FAERS Safety Report 7202716-0 (Version None)
Quarter: 2010Q4

REPORT INFORMATION
  Report Type: 
  Country: None (occurrence: None)
  Receive Date: 20101229
  Receipt Date: 20101229
  Transmission Date: 20110411
  Serious: Yes (Death)
  Sender: FDA-Public Use
  Company Number: US-EISAI INC.-E2020-08126-SPO-US

PATIENT
  Age: 85 Year
  Sex: Male

DRUGS (6)
  1. ARICEPT [Suspect]
     Route: 048
     Dates: start: 20101026
  2. GLUCOTROL [Concomitant]
     Indication: DIABETES MELLITUS
     Route: 048
     Dates: start: 20090505
  3. METFORMIN [Concomitant]
     Indication: DIABETES MELLITUS
     Dates: start: 20090505
  4. CARVEDILOL [Concomitant]
     Dates: start: 20081229
  5. TRICOR [Concomitant]
     Dates: start: 20090505
  6. LISINOPRIL [Concomitant]
     Dates: start: 20100323

REACTIONS (1)
  - COMPLETED SUICIDE [None]
